FAERS Safety Report 15935050 (Version 1)
Quarter: 2019Q1

REPORT INFORMATION
  Report Type: Report from Study
  Country: None (occurrence: FR)
  Receive Date: 20190207
  Receipt Date: 20190207
  Transmission Date: 20190417
  Serious: Yes (Other)
  Sender: FDA-Public Use
  Company Number: FR-ABBVIE-19P-056-2654801-00

PATIENT
  Age: 66 Year
  Sex: Male

DRUGS (4)
  1. OBINUTUZUMAB. [Concomitant]
     Active Substance: OBINUTUZUMAB
     Indication: LYMPHOMA
     Dosage: LAST DOSE DATE PRIOR TO SERIOUS AE: 09/JAN/2019
     Route: 065
     Dates: start: 20180926
  2. ATEZOLIZUMAB. [Concomitant]
     Active Substance: ATEZOLIZUMAB
     Indication: LYMPHOMA
     Dosage: LAST DOSE DATE PRIOR TO SERIOUS ADVERSE EVENT : 10/JAN/2019
     Route: 065
     Dates: start: 20180927
  3. VENETOCLAX. [Suspect]
     Active Substance: VENETOCLAX
     Indication: LYMPHOMA
     Dosage: LAST DOSE DATE PRIOR TO SERIOUS ADVERSE EVENT : 14/JAN/2019
     Route: 048
     Dates: start: 20181003
  4. TINZAPARIN SODIUM [Concomitant]
     Active Substance: TINZAPARIN SODIUM
     Indication: THROMBOSIS
     Route: 065
     Dates: start: 20180926

REACTIONS (1)
  - Cardiac flutter [Not Recovered/Not Resolved]

NARRATIVE: CASE EVENT DATE: 20190114
